FAERS Safety Report 9345997 (Version 2)
Quarter: 2013Q2

REPORT INFORMATION
  Report Type: Spontaneous
  Country: IT (occurrence: IT)
  Receive Date: 20130613
  Receipt Date: 20130617
  Transmission Date: 20140414
  Serious: Yes (Hospitalization)
  Sender: FDA-Public Use
  Company Number: PHHY2013IT058831

PATIENT
  Age: 33 Year
  Sex: Male

DRUGS (2)
  1. AMOXICILLIN-CLAVULANIC ACID [Suspect]
     Indication: PNEUMONIA
     Dosage: 3 G, QD
     Route: 048
     Dates: start: 20130528, end: 20130531
  2. AZITHROMYCIN [Suspect]
     Indication: PNEUMONIA
     Dosage: 500 MG, QD
     Route: 048
     Dates: start: 20130525, end: 20130530

REACTIONS (4)
  - Vasculitis necrotising [Recovering/Resolving]
  - Arthritis [Recovering/Resolving]
  - Vomiting [Recovering/Resolving]
  - Diarrhoea [Recovering/Resolving]
